FAERS Safety Report 23363481 (Version 2)
Quarter: 2024Q1

REPORT INFORMATION
  Report Type: Report from Study
  Country: LT (occurrence: LT)
  Receive Date: 20240103
  Receipt Date: 20240201
  Transmission Date: 20240409
  Serious: Yes (Other)
  Sender: FDA-Public Use
  Company Number: LT-VER-202300002

PATIENT
  Age: 75 Year
  Sex: Male
  Weight: 99 kg

DRUGS (5)
  1. TRIPTORELIN PAMOATE [Suspect]
     Active Substance: TRIPTORELIN PAMOATE
     Indication: Prostate cancer
     Dosage: INJECTION TRIPTORELIN 6M (22.5 MG,24 WK)
     Route: 058
     Dates: start: 20230712, end: 20230712
  2. JARDIANCE [Concomitant]
     Active Substance: EMPAGLIFLOZIN
     Indication: Myocardial ischaemia
     Dosage: (10 MG,1 D)
     Route: 048
     Dates: start: 2017
  3. METOPROLOL [Concomitant]
     Active Substance: METOPROLOL
     Indication: Essential hypertension
     Dosage: (47.5 MG,1 D)
     Route: 048
     Dates: start: 2017
  4. AMLODIPINE\ATORVASTATIN\PERINDOPRIL [Concomitant]
     Active Substance: AMLODIPINE\ATORVASTATIN\PERINDOPRIL
     Indication: Essential hypertension
     Dosage: 10/5/5 MILLIGRAM (1 D)
     Route: 048
     Dates: start: 2022
  5. TAMSULOSIN HYDROCHLORIDE [Concomitant]
     Active Substance: TAMSULOSIN HYDROCHLORIDE
     Indication: Benign prostatic hyperplasia
     Dosage: (0.4 MG,1 D)
     Route: 048
     Dates: start: 2017

REACTIONS (1)
  - Syncope [Recovered/Resolved]

NARRATIVE: CASE EVENT DATE: 20231005
